FAERS Safety Report 4636332-1 (Version None)
Quarter: 2005Q2

REPORT INFORMATION
  Report Type: 
  Country: None (occurrence: None)
  Receive Date: 20050415
  Receipt Date: 20041102
  Transmission Date: 20051028
  Serious: No
  Sender: FDA-Public Use
  Company Number: US-BRISTOL-MYERS SQUIBB COMPANY-12754776

PATIENT
  Age: 71 Year
  Sex: Female
  Weight: 63 kg

DRUGS (8)
  1. CARBOPLATIN [Suspect]
     Indication: NON-SMALL CELL LUNG CANCER
     Route: 042
     Dates: start: 20040902, end: 20040902
  2. GEMZAR [Concomitant]
     Indication: NON-SMALL CELL LUNG CANCER
     Route: 042
  3. DECADRON [Concomitant]
     Indication: PREMEDICATION
     Route: 042
  4. KYTRIL [Concomitant]
     Indication: PREMEDICATION
     Route: 042
  5. PHENOBARBITAL [Concomitant]
     Indication: EPILEPSY
  6. DILANTIN [Concomitant]
     Indication: EPILEPSY
  7. MYSOLINE [Concomitant]
     Indication: EPILEPSY
  8. MICARDIS [Concomitant]
     Indication: HYPERTENSION

REACTIONS (3)
  - HAEMATOCRIT DECREASED [None]
  - PLATELET COUNT DECREASED [None]
  - WHITE BLOOD CELL COUNT DECREASED [None]
